APPROVED DRUG PRODUCT: INDOMETHACIN SODIUM
Active Ingredient: INDOMETHACIN SODIUM
Strength: EQ 1MG BASE/VIAL
Dosage Form/Route: INJECTABLE;INJECTION
Application: A206561 | Product #001
Applicant: NAVINTA LLC
Approved: Jul 19, 2017 | RLD: No | RS: No | Type: DISCN